FAERS Safety Report 15682893 (Version 1)
Quarter: 2018Q4

REPORT INFORMATION
  Report Type: Spontaneous
  Country: US (occurrence: US)
  Receive Date: 20181203
  Receipt Date: 20181203
  Transmission Date: 20190205
  Serious: No
  Sender: FDA-Public Use
  Company Number: US-BAYER-2018-222755

PATIENT
  Age: 79 Year
  Sex: Female
  Weight: 45 kg

DRUGS (1)
  1. MIRALAX [Suspect]
     Active Substance: POLYETHYLENE GLYCOL 3350
     Indication: CONSTIPATION
     Dosage: 1 CAPFUL
     Route: 048
     Dates: start: 201810, end: 201810

REACTIONS (3)
  - Product packaging issue [None]
  - Drug ineffective [Unknown]
  - Product quality issue [None]

NARRATIVE: CASE EVENT DATE: 201810
